FAERS Safety Report 17556283 (Version 1)
Quarter: 2020Q1

REPORT INFORMATION
  Report Type: Spontaneous
  Country: US (occurrence: US)
  Receive Date: 20200318
  Receipt Date: 20200318
  Transmission Date: 20200409
  Serious: Yes (Other)
  Sender: FDA-Public Use
  Company Number: US-PFIZER INC-2020116465

PATIENT
  Age: 46 Year
  Sex: Male
  Weight: 99.77 kg

DRUGS (1)
  1. DEPO-TESTOSTERONE [Suspect]
     Active Substance: TESTOSTERONE CYPIONATE
     Dosage: 1 ML, UNK (EVERY 72 HOURS)
     Route: 030

REACTIONS (4)
  - Injection site swelling [Unknown]
  - Injection site inflammation [Unknown]
  - Muscle swelling [Not Recovered/Not Resolved]
  - Injection site pain [Unknown]

NARRATIVE: CASE EVENT DATE: 20200316
